FAERS Safety Report 8007241-5 (Version None)
Quarter: 2011Q4

REPORT INFORMATION
  Report Type: 
  Country: None (occurrence: None)
  Receive Date: 20111227
  Receipt Date: 20111214
  Transmission Date: 20120403
  Serious: Yes (Other)
  Sender: FDA-Public Use
  Company Number: JP-JNJFOC-20111102144

PATIENT
  Age: 53 Year
  Sex: Female
  Weight: 64 kg

DRUGS (20)
  1. FLUVOXAMINE MALEATE [Interacting]
     Route: 048
     Dates: start: 20100924, end: 20100928
  2. GABAPENTIN [Concomitant]
     Route: 048
     Dates: start: 20100922, end: 20100930
  3. GABAPENTIN [Concomitant]
     Route: 048
     Dates: start: 20101012, end: 20110111
  4. UBRETID [Concomitant]
     Indication: DYSURIA
     Route: 048
  5. FENTANYL-100 [Suspect]
     Indication: PAIN
     Route: 062
     Dates: start: 20100910, end: 20101025
  6. FENTANYL-100 [Suspect]
     Route: 062
     Dates: start: 20101028
  7. PANVITAN [Concomitant]
     Indication: VITAMIN SUPPLEMENTATION
     Route: 048
     Dates: start: 20100615, end: 20110711
  8. ACETAMINOPHEN [Concomitant]
     Indication: PAIN
     Route: 065
     Dates: start: 20100409, end: 20110711
  9. RABEPRAZOLE SODIUM [Concomitant]
     Indication: GASTROOESOPHAGEAL REFLUX DISEASE
     Route: 048
  10. NOVAMIN [Concomitant]
     Indication: PROPHYLAXIS
     Route: 048
     Dates: start: 20100910, end: 20100926
  11. ETIZOLAM [Concomitant]
     Indication: PAIN
     Route: 048
     Dates: end: 20110711
  12. BROTIZOLAM [Concomitant]
     Route: 048
     Dates: end: 20100915
  13. MAGMITT [Concomitant]
     Indication: PROPHYLAXIS
     Route: 048
     Dates: start: 20100714
  14. DANTRIUM [Concomitant]
     Indication: PAIN
     Route: 048
     Dates: start: 20091215, end: 20110711
  15. GABAPENTIN [Concomitant]
     Indication: PAIN
     Route: 048
     Dates: start: 20101001, end: 20101106
  16. GABAPENTIN [Concomitant]
     Route: 048
     Dates: start: 20101007, end: 20101009
  17. GABAPENTIN [Concomitant]
     Route: 048
     Dates: start: 20100908, end: 20100921
  18. FLUVOXAMINE MALEATE [Interacting]
     Indication: ANALGESIC THERAPY
     Route: 048
     Dates: start: 20090219, end: 20100923
  19. CODEINE PHOSPHATE [Concomitant]
     Indication: PAIN
     Dosage: 120-180 MG PER DAY
     Route: 048
     Dates: start: 20100511, end: 20110720
  20. FERROUS CITRATE [Concomitant]
     Indication: MINERAL SUPPLEMENTATION
     Route: 048
     Dates: start: 20100614, end: 20110711

REACTIONS (8)
  - DIZZINESS [None]
  - VOMITING [None]
  - DYSARTHRIA [None]
  - DRUG EFFECT INCREASED [None]
  - SOMNOLENCE [None]
  - DRUG INTERACTION [None]
  - NAUSEA [None]
  - DRUG INEFFECTIVE [None]
